FAERS Safety Report 12490360 (Version 7)
Quarter: 2018Q2

REPORT INFORMATION
  Report Type: Report from Study
  Country: US (occurrence: US)
  Receive Date: 20160622
  Receipt Date: 20180526
  Transmission Date: 20180711
  Serious: No
  Sender: FDA-Public Use
  Company Number: PHEH2016US015211

PATIENT
  Age: 43 Year
  Sex: Male
  Weight: 136 kg

DRUGS (4)
  1. VITAMIN D [Concomitant]
     Active Substance: CHOLECALCIFEROL
     Indication: PRODUCT USED FOR UNKNOWN INDICATION
     Dosage: UNK
     Route: 065
  2. GILENYA [Suspect]
     Active Substance: FINGOLIMOD HYDROCHLORIDE
     Indication: RELAPSING-REMITTING MULTIPLE SCLEROSIS
     Dosage: 0.5 MG, QD
     Route: 048
     Dates: start: 20160612
  3. GILENYA [Suspect]
     Active Substance: FINGOLIMOD HYDROCHLORIDE
     Dosage: 0.5 MG, QD
     Route: 048
     Dates: start: 201606
  4. NEXIUM I.V. [Concomitant]
     Active Substance: ESOMEPRAZOLE SODIUM
     Indication: PRODUCT USED FOR UNKNOWN INDICATION
     Dosage: UNK
     Route: 065

REACTIONS (18)
  - Feeling abnormal [Unknown]
  - Irregular breathing [Unknown]
  - Dyspepsia [Unknown]
  - Abdominal pain upper [Unknown]
  - Pain [Unknown]
  - Accidental overdose [Unknown]
  - Panic attack [Unknown]
  - Vitamin D decreased [Unknown]
  - Abdominal distension [Unknown]
  - Fatigue [Unknown]
  - Sensory disturbance [Unknown]
  - Palpitations [Unknown]
  - Hypopnoea [Unknown]
  - Dyspnoea [Unknown]
  - Musculoskeletal stiffness [Unknown]
  - Electrocardiogram abnormal [Unknown]
  - Gait disturbance [Unknown]
  - Diarrhoea [Recovered/Resolved]

NARRATIVE: CASE EVENT DATE: 201606
